FAERS Safety Report 24648712 (Version 4)
Quarter: 2024Q4

REPORT INFORMATION
  Report Type: Spontaneous
  Country: US (occurrence: US)
  Receive Date: 20241121
  Receipt Date: 20241220
  Transmission Date: 20250115
  Serious: No
  Sender: PFIZER
  Company Number: US-PFIZER INC-PV202400140876

PATIENT
  Age: 78 Year
  Sex: Female
  Weight: 74.8 kg

DRUGS (15)
  1. IBRANCE [Suspect]
     Active Substance: PALBOCICLIB
     Indication: Malignant nipple neoplasm female
     Dosage: 125 MG, CYCLIC (ONE CAPSULE WITH FOOD, DAY 1-21 ON 7 DAYS OFF)
     Route: 048
     Dates: start: 20241015
  2. IBRANCE [Suspect]
     Active Substance: PALBOCICLIB
     Indication: Hormone receptor positive breast cancer
     Dosage: 125 MG, CYCLIC (ONE CAPSULE WITH FOOD, DAY 1-21 ON 7 DAYS OFF)
     Route: 048
     Dates: start: 20241101, end: 20241122
  3. IBRANCE [Suspect]
     Active Substance: PALBOCICLIB
     Dosage: 100 MG, CYCLIC (TAKE ONE TAB BY MOUTH DAILY TAKE ONE TAB PO FOR 21 OUT OF 28 DAYS)
     Route: 048
  4. ADVIL LIQUI-GELS [Concomitant]
     Active Substance: IBUPROFEN
     Dosage: 3 DF, AS NEEDED, (TAKE THREE CAPS BY MOUTH EVERY 6 HOURS, AS NEEDED)
     Route: 048
     Dates: start: 20200528
  5. LYRICA [Concomitant]
     Active Substance: PREGABALIN
     Dosage: 1 DF, 2X/DAY
     Route: 048
  6. ZOLOFT [Concomitant]
     Active Substance: SERTRALINE HYDROCHLORIDE
     Dosage: 50 MG, 1X/DAY, EVERY EVENING
     Route: 048
     Dates: start: 20231210
  7. ASPIRIN [Concomitant]
     Active Substance: ASPIRIN
     Dosage: UNK
  8. BACLOFEN [Concomitant]
     Active Substance: BACLOFEN
     Dosage: UNK
  9. VITAMIN D3 [Concomitant]
     Active Substance: CHOLECALCIFEROL
     Dosage: UNK
  10. PEPCID [Concomitant]
     Active Substance: FAMOTIDINE
     Dosage: UNK
  11. NORCO [Concomitant]
     Active Substance: ACETAMINOPHEN\HYDROCODONE BITARTRATE
     Dosage: UNK
  12. ALPRAZOLAM [Concomitant]
     Active Substance: ALPRAZOLAM
     Dosage: UNK
  13. SYNTHROID [Concomitant]
     Active Substance: LEVOTHYROXINE SODIUM
     Dosage: UNK
  14. ZOFRAN [Concomitant]
     Active Substance: ONDANSETRON HYDROCHLORIDE
     Dosage: UNK
  15. VITAMIN B12 [Concomitant]
     Active Substance: CYANOCOBALAMIN
     Dosage: UNK

REACTIONS (4)
  - Neoplasm progression [Unknown]
  - Musculoskeletal chest pain [Unknown]
  - Back pain [Not Recovered/Not Resolved]
  - White blood cell count decreased [Unknown]

NARRATIVE: CASE EVENT DATE: 20241112
